FAERS Safety Report 5893016-X (Version None)
Quarter: 2008Q3

REPORT INFORMATION
  Report Type: 
  Country: None (occurrence: None)
  Receive Date: 20080923
  Receipt Date: 20080131
  Transmission Date: 20090109
  Serious: No
  Sender: FDA-Public Use
  Company Number: US-ASTRAZENECA-2007UW02118

PATIENT
  Age: 12081 Day
  Sex: Female
  Weight: 90.9 kg

DRUGS (1)
  1. SEROQUEL [Suspect]
     Indication: BIPOLAR DISORDER
     Route: 048
     Dates: start: 20011201

REACTIONS (10)
  - ANXIETY [None]
  - CHEST PAIN [None]
  - FLANK PAIN [None]
  - GASTROENTERITIS [None]
  - GASTROOESOPHAGEAL REFLUX DISEASE [None]
  - HEPATOSPLENOMEGALY [None]
  - NECK INJURY [None]
  - POST-TRAUMATIC STRESS DISORDER [None]
  - TENSION HEADACHE [None]
  - TYPE 2 DIABETES MELLITUS [None]
